FAERS Safety Report 23298889 (Version 2)
Quarter: 2024Q1

REPORT INFORMATION
  Report Type: Spontaneous
  Country: US (occurrence: US)
  Receive Date: 20231215
  Receipt Date: 20240104
  Transmission Date: 20240410
  Serious: No
  Sender: FDA-Public Use
  Company Number: US-JNJFOC-20231204340

PATIENT
  Sex: Female

DRUGS (1)
  1. TREMFYA [Suspect]
     Active Substance: GUSELKUMAB
     Indication: Product used for unknown indication
     Route: 065
     Dates: start: 20221206

REACTIONS (5)
  - Liquid product physical issue [Unknown]
  - Rash [Unknown]
  - Chest discomfort [Unknown]
  - Pruritus [Unknown]
  - Poor quality product administered [Unknown]
